FAERS Safety Report 23058225 (Version 2)
Quarter: 2023Q4

REPORT INFORMATION
  Report Type: Spontaneous
  Country: US (occurrence: None)
  Receive Date: 20231012
  Receipt Date: 20231116
  Transmission Date: 20240109
  Serious: No
  Sender: FDA-Public Use
  Company Number: 2023A228888

PATIENT
  Sex: Female

DRUGS (1)
  1. FASENRA [Suspect]
     Active Substance: BENRALIZUMAB
     Indication: Asthma
     Dosage: 1.0MG ONCE/SINGLE ADMINISTRATION
     Route: 058

REACTIONS (2)
  - Systemic lupus erythematosus [Unknown]
  - Injection site rash [Unknown]
